FAERS Safety Report 11586056 (Version 1)
Quarter: 2015Q4

REPORT INFORMATION
  Report Type: Spontaneous
  Country: US (occurrence: US)
  Receive Date: 20151001
  Receipt Date: 20151001
  Transmission Date: 20160304
  Serious: No
  Sender: FDA-Public Use
  Company Number: US-ASTRAZENECA-2015SE91838

PATIENT

DRUGS (1)
  1. NEXIUM [Suspect]
     Active Substance: ESOMEPRAZOLE MAGNESIUM
     Route: 048

REACTIONS (6)
  - Clumsiness [Unknown]
  - Bone density decreased [Unknown]
  - Ankle fracture [Unknown]
  - Gastrointestinal disorder [Unknown]
  - Pain [Unknown]
  - Hiatus hernia [Unknown]
